FAERS Safety Report 4687855-0 (Version None)
Quarter: 2005Q2

REPORT INFORMATION
  Report Type: 
  Country: None (occurrence: None)
  Receive Date: 20050610
  Receipt Date: 20050602
  Transmission Date: 20051028
  Serious: Yes (Disabling)
  Sender: FDA-Public Use
  Company Number: US-ABBOTT-05P-163-0302220-00

PATIENT
  Sex: Male

DRUGS (5)
  1. RITONAVIR SOFT GELATIN CAPSULES [Suspect]
     Indication: HIV INFECTION
     Route: 048
     Dates: start: 20041108, end: 20050419
  2. FOSAMPRENAVIR [Concomitant]
     Indication: HIV INFECTION
     Route: 048
     Dates: start: 20041108, end: 20050419
  3. EPZICOM [Concomitant]
     Indication: HIV INFECTION
     Route: 048
     Dates: start: 20041108, end: 20050419
  4. BUPROPION HYDROCHLORIDE [Concomitant]
     Indication: DEPRESSION
     Dates: start: 19950201
  5. LOPERAMIDE HYDROCHLORIDE [Concomitant]
     Indication: DRUG USE FOR UNKNOWN INDICATION
     Dates: start: 20050324, end: 20050418

REACTIONS (9)
  - ANXIETY [None]
  - BALANCE DISORDER [None]
  - DEPRESSED MOOD [None]
  - DIZZINESS [None]
  - HEADACHE [None]
  - INSOMNIA [None]
  - IRRITABILITY [None]
  - PHOTOPHOBIA [None]
  - TREMOR [None]
